FAERS Safety Report 9998735 (Version 1)
Quarter: 2014Q1

REPORT INFORMATION
  Report Type: Spontaneous
  Country: US (occurrence: US)
  Receive Date: 20140312
  Receipt Date: 20140312
  Transmission Date: 20141002
  Serious: No
  Sender: FDA-Public Use
  Company Number: US-BIOGENIDEC-2014BI019619

PATIENT
  Age: 49 Year
  Sex: Female

DRUGS (6)
  1. TECFIDERA [Suspect]
     Indication: MULTIPLE SCLEROSIS
     Route: 048
  2. ESCITALOPRAM OXALATE [Concomitant]
  3. GABAPENTIN [Concomitant]
  4. TIZANIDINE HCI [Concomitant]
  5. VITAMIN D3 [Concomitant]
  6. WOMENS 50+ MULTI VITAMIN/MIN [Concomitant]

REACTIONS (2)
  - Blood iron decreased [Unknown]
  - Diarrhoea [Unknown]
